FAERS Safety Report 8583547-6 (Version None)
Quarter: 2012Q3

REPORT INFORMATION
  Report Type: 
  Country: None (occurrence: None)
  Receive Date: 20120809
  Receipt Date: 20110606
  Transmission Date: 20120928
  Serious: Yes (Hospitalization)
  Sender: FDA-Public Use
  Company Number: PH-BRISTOL-MYERS SQUIBB COMPANY-15190606

PATIENT
  Age: 39 Year
  Sex: Male

DRUGS (3)
  1. ARIPIPRAZOLE [Suspect]
     Indication: SCHIZOPHRENIA
     Dosage: IM DEPOT:24JUN10(1D), STUDY TERMINATED ON 08-JUL-2010.
     Route: 030
     Dates: start: 20100624, end: 20100624
  2. BIPERIDEN HYDROCHLORIDE TAB [Concomitant]
     Dates: start: 19880826
  3. CLONAZEPAM [Concomitant]
     Dates: start: 19891019

REACTIONS (1)
  - SCHIZOPHRENIA [None]
